FAERS Safety Report 7361362-9 (Version None)
Quarter: 2011Q1

REPORT INFORMATION
  Report Type: 
  Country: None (occurrence: None)
  Receive Date: 20110318
  Receipt Date: 20110310
  Transmission Date: 20110831
  Serious: Yes (Other)
  Sender: FDA-Public Use
  Company Number: B0706556A

PATIENT
  Age: 50 Year
  Sex: Female

DRUGS (5)
  1. ATAZANAVIR [Suspect]
  2. ABACAVIR SULFATE/LAMIVUDINE [Suspect]
     Indication: HIV INFECTION
     Route: 065
  3. LAMIVUDINE + ZIDOVUDINE [Suspect]
     Indication: HIV INFECTION
     Route: 065
  4. FOSAMPRENAVIR [Suspect]
     Indication: HIV INFECTION
     Route: 065
  5. ZIDOVUDINE [Suspect]
     Indication: HIV INFECTION
     Route: 065

REACTIONS (6)
  - IMMUNE RECONSTITUTION SYNDROME [None]
  - CYTOMEGALOVIRUS INFECTION [None]
  - HEADACHE [None]
  - VOMITING [None]
  - NAUSEA [None]
  - DRUG INTOLERANCE [None]
